FAERS Safety Report 4960284-8 (Version None)
Quarter: 2006Q2

REPORT INFORMATION
  Report Type: 
  Country: None (occurrence: None)
  Receive Date: 20060403
  Receipt Date: 20040920
  Transmission Date: 20061013
  Serious: Yes (Other)
  Sender: FDA-Public Use
  Company Number: PHBS2004BR12521

PATIENT
  Age: 83 Year
  Sex: Female
  Weight: 47 kg

DRUGS (6)
  1. DIOVAN HCT [Suspect]
     Indication: HYPERTENSION
     Dosage: VALS 160/ HCT 12.5 MG/QOD
     Route: 048
     Dates: start: 20040801
  2. DIOVAN [Suspect]
     Indication: HYPERTENSION
     Dosage: 160 MG, QOD
     Route: 048
     Dates: start: 20040801
  3. GINKGO BILOBA [Concomitant]
     Indication: AMNESIA
     Dosage: 1 TABLET, QD
     Route: 048
  4. VITAMIN E [Concomitant]
     Dosage: 1 TABLET, QD
     Route: 048
  5. CALCIO [Concomitant]
     Indication: OSTEOPOROSIS
     Dosage: 1 TABLET, QD
     Route: 048
  6. ANDRONAX [Concomitant]
     Indication: OSTEOPOROSIS
     Dosage: 1 TABLET, QD
     Route: 048

REACTIONS (2)
  - EYE DEGENERATIVE DISORDER [None]
  - NAUSEA [None]
